FAERS Safety Report 8467444-2 (Version None)
Quarter: 2012Q2

REPORT INFORMATION
  Report Type: 
  Country: None (occurrence: None)
  Receive Date: 20120626
  Receipt Date: 20120411
  Transmission Date: 20120825
  Serious: No
  Sender: FDA-Public Use
  Company Number: US-ASTRAZENECA-2012SE16447

PATIENT
  Age: 51 Year
  Sex: Male

DRUGS (7)
  1. VITAMIN D [Concomitant]
     Route: 048
  2. ASCORBIC ACID [Concomitant]
     Route: 048
  3. CAPRELSA [Suspect]
     Indication: THYROID CANCER
     Route: 048
  4. SYNTHROID [Concomitant]
     Route: 048
  5. CALCIUM [Concomitant]
     Route: 048
  6. POTASSIUM CHLORIDE CR [Concomitant]
     Route: 048
  7. MINOCYCLINE HCL [Concomitant]
     Route: 048

REACTIONS (2)
  - MUSCLE SPASMS [None]
  - ARTHRALGIA [None]
